FAERS Safety Report 10238639 (Version 2)
Quarter: 2014Q2

REPORT INFORMATION
  Report Type: Spontaneous
  Country: US (occurrence: US)
  Receive Date: 20140616
  Receipt Date: 20140616
  Transmission Date: 20141212
  Serious: No
  Sender: FDA-Public Use
  Company Number: US-ENDO PHARMACEUTICALS INC.-OPCR20121556

PATIENT
  Sex: Male

DRUGS (4)
  1. OPANA ER [Suspect]
     Indication: BACK PAIN
     Route: 048
     Dates: start: 2012
  2. OPANA ER [Suspect]
     Route: 048
     Dates: start: 2012
  3. OPANA ER [Concomitant]
     Indication: BACK PAIN
     Dosage: UNKN0WN
     Route: 048
     Dates: end: 2012
  4. OXYCODONE [Concomitant]
     Indication: BREAKTHROUGH PAIN
     Route: 048

REACTIONS (2)
  - Drug effect decreased [Not Recovered/Not Resolved]
  - Drug ineffective [Not Recovered/Not Resolved]
